FAERS Safety Report 4276213-9 (Version None)
Quarter: 2004Q1

REPORT INFORMATION
  Report Type: 
  Country: None (occurrence: None)
  Receive Date: 20040121
  Receipt Date: 20030506
  Transmission Date: 20041129
  Serious: Yes (Other)
  Sender: FDA-Public Use
  Company Number: US-GLAXOSMITHKLINE-A0407353A

PATIENT
  Age: 62 Year
  Sex: Male
  Weight: 87.7 kg

DRUGS (10)
  1. ZIAGEN [Suspect]
     Indication: HIV INFECTION
     Dosage: 600MG PER DAY
     Route: 048
     Dates: start: 20030418, end: 20030429
  2. SUSTIVA [Concomitant]
     Indication: HIV INFECTION
     Dosage: 600MG PER DAY
     Route: 048
     Dates: start: 20020419
  3. VIREAD [Concomitant]
     Dosage: 300MG UNKNOWN
     Route: 048
     Dates: start: 20030419
  4. HYDROCHLOROTHIAZIDE [Concomitant]
     Route: 048
     Dates: start: 19991228
  5. UNIVASC [Concomitant]
     Dosage: 30MG UNKNOWN
     Route: 048
     Dates: start: 20000404
  6. LIPITOR [Concomitant]
     Dosage: 20MG UNKNOWN
     Route: 048
     Dates: start: 20030206
  7. ZOLOFT [Concomitant]
     Route: 048
     Dates: start: 20000107
  8. TESTOSTERONE [Concomitant]
     Dosage: 300MG WEEKLY
     Route: 030
     Dates: start: 20020702
  9. RHINOCORT [Concomitant]
     Dosage: 1PUFF AT NIGHT
     Route: 045
     Dates: start: 20030411
  10. ASPIRIN [Concomitant]
     Route: 048
     Dates: start: 20020726

REACTIONS (11)
  - ARTHRALGIA [None]
  - FATIGUE [None]
  - HYPERSENSITIVITY [None]
  - LETHARGY [None]
  - MALAISE [None]
  - MYALGIA [None]
  - OEDEMA [None]
  - PAIN [None]
  - PYREXIA [None]
  - RASH [None]
  - VOMITING [None]
